FAERS Safety Report 15255524 (Version 1)
Quarter: 2018Q3

REPORT INFORMATION
  Report Type: Spontaneous
  Country: SA (occurrence: SA)
  Receive Date: 20180717
  Receipt Date: 20180717
  Transmission Date: 20181010
  Serious: Yes (Life-Threatening, Disabling)
  Sender: FDA-Public Use
  Company Number: None

PATIENT
  Age: 48 Year
  Sex: Male
  Weight: 75 kg

DRUGS (9)
  1. MAXIM (MOXIFLOXACIN) [Suspect]
     Active Substance: MOXIFLOXACIN
     Indication: URINARY TRACT INFECTION
     Dosage: ?          QUANTITY:1 TABLET(S);?
     Route: 048
     Dates: start: 20180106, end: 20180108
  2. MAGNESIUM [Concomitant]
     Active Substance: MAGNESIUM
  3. OMEGA 3 [Concomitant]
     Active Substance: OMEGA-3 FATTY ACIDS
  4. COQ10 [Concomitant]
     Active Substance: UBIDECARENONE
  5. TARIVID (OFLOXACIN) [Suspect]
     Active Substance: OFLOXACIN
     Indication: URINARY TRACT INFECTION
     Dosage: ?          QUANTITY:1 TABLET(S);?
     Route: 048
     Dates: start: 20180109, end: 20180111
  6. VITAMIN D [Concomitant]
     Active Substance: CHOLECALCIFEROL
  7. PROBIOTICS [Concomitant]
     Active Substance: PROBIOTICS NOS
  8. MULTIVITAMIN [Concomitant]
     Active Substance: VITAMINS
  9. VITAMIN B12 [Concomitant]
     Active Substance: CYANOCOBALAMIN

REACTIONS (7)
  - Diarrhoea [None]
  - Dyspepsia [None]
  - Mental disorder [None]
  - Gastrooesophageal reflux disease [None]
  - Malaise [None]
  - Quality of life decreased [None]
  - Adverse drug reaction [None]

NARRATIVE: CASE EVENT DATE: 20180112
